FAERS Safety Report 7261479-3 (Version None)
Quarter: 2011Q1

REPORT INFORMATION
  Report Type: 
  Country: None (occurrence: None)
  Receive Date: 20110130
  Receipt Date: 20100921
  Transmission Date: 20110831
  Serious: No
  Sender: FDA-Public Use
  Company Number: US-ABBOTT-10P-163-0672483-00

PATIENT
  Age: 20 Year
  Sex: Female

DRUGS (4)
  1. HUMIRA [Suspect]
     Indication: CROHN'S DISEASE
     Dates: start: 20100801
  2. PREDNISONE [Concomitant]
     Indication: PRODUCT USED FOR UNKNOWN INDICATION
     Dosage: WILL GO DOWN TO 5MG ON 23 SEP, AND THEN TWO WEEKS LATER WILL GO OFF
  3. BIRTH CONTROL PILL [Concomitant]
     Indication: CONTRACEPTION
  4. HUMIRA [Suspect]

REACTIONS (2)
  - HEADACHE [None]
  - DIARRHOEA [None]
